FAERS Safety Report 7114509-3 (Version None)
Quarter: 2010Q4

REPORT INFORMATION
  Report Type: 
  Country: None (occurrence: None)
  Receive Date: 20101119
  Receipt Date: 20101109
  Transmission Date: 20110411
  Serious: Yes (Other)
  Sender: FDA-Public Use
  Company Number: GB-ABBOTT-10P-167-0684409-00

PATIENT
  Sex: Female
  Weight: 50 kg

DRUGS (4)
  1. HUMIRA [Suspect]
     Indication: RHEUMATOID ARTHRITIS
     Route: 058
     Dates: start: 20050513, end: 20100401
  2. HUMIRA [Suspect]
     Dates: start: 20100615, end: 20100915
  3. CO-DYDRAMOL [Concomitant]
     Indication: PRODUCT USED FOR UNKNOWN INDICATION
  4. NULYTELY [Concomitant]
     Indication: PRODUCT USED FOR UNKNOWN INDICATION

REACTIONS (12)
  - ALOPECIA [None]
  - DECREASED APPETITE [None]
  - DENTURE WEARER [None]
  - DRUG INEFFECTIVE [None]
  - GASTROINTESTINAL DISORDER [None]
  - HERPES ZOSTER [None]
  - MALAISE [None]
  - MENTAL DISORDER [None]
  - MOUTH ULCERATION [None]
  - NEUTROPENIA [None]
  - SKIN INFECTION [None]
  - WEIGHT DECREASED [None]
